FAERS Safety Report 7423875-0 (Version None)
Quarter: 2011Q2

REPORT INFORMATION
  Report Type: 
  Country: None (occurrence: None)
  Receive Date: 20110419
  Receipt Date: 20110411
  Transmission Date: 20111010
  Serious: Yes (Other)
  Sender: FDA-Public Use
  Company Number: GB-ABBOTT-11P-167-0718435-00

PATIENT
  Age: 92 Year
  Sex: Female

DRUGS (3)
  1. AZATHIOPRINE [Suspect]
     Indication: PRODUCT USED FOR UNKNOWN INDICATION
  2. ZITHROMAX [Suspect]
     Indication: PROPHYLAXIS
  3. KLARICID [Suspect]
     Indication: PRODUCT USED FOR UNKNOWN INDICATION

REACTIONS (15)
  - TACHYCARDIA [None]
  - CHRONIC OBSTRUCTIVE PULMONARY DISEASE [None]
  - HEARING IMPAIRED [None]
  - GENERAL PHYSICAL HEALTH DETERIORATION [None]
  - AMNESIA [None]
  - MEMORY IMPAIRMENT [None]
  - SHOCK [None]
  - PSYCHOMOTOR HYPERACTIVITY [None]
  - INCREASED TENDENCY TO BRUISE [None]
  - DYSARTHRIA [None]
  - INSOMNIA [None]
  - ASTHENIA [None]
  - COLLAPSE OF LUNG [None]
  - ANXIETY [None]
  - FATIGUE [None]
